FAERS Safety Report 19476554 (Version 1)
Quarter: 2021Q2

REPORT INFORMATION
  Report Type: Spontaneous
  Country: GB (occurrence: GB)
  Receive Date: 20210630
  Receipt Date: 20210630
  Transmission Date: 20210717
  Serious: Yes (Other)
  Sender: FDA-Public Use
  Company Number: GB-ACCORD-229716

PATIENT
  Age: 40 Year
  Sex: Female
  Weight: 67 kg

DRUGS (4)
  1. MONTELUKAST [Suspect]
     Active Substance: MONTELUKAST SODIUM
     Indication: PRODUCT USED FOR UNKNOWN INDICATION
     Dosage: 10, AT NIGHT
     Route: 048
     Dates: start: 20200806, end: 20210212
  2. COVID?19 VACCINE [Concomitant]
     Indication: COVID-19 IMMUNISATION
     Dosage: 1
     Route: 030
     Dates: start: 20210330, end: 20210330
  3. SALBUTAMOL [Concomitant]
     Active Substance: ALBUTEROL
     Dosage: 2, 100MICROGRAMS/DOSE INHALER CFC FREE
     Route: 055
     Dates: start: 20210603
  4. SPIRIVA [Concomitant]
     Active Substance: TIOTROPIUM BROMIDE MONOHYDRATE
     Dosage: 2.5MG/DOSE. PUFFS, 2
     Route: 055
     Dates: start: 20210412, end: 20210527

REACTIONS (5)
  - Mononeuropathy multiplex [Unknown]
  - Eosinophilic granulomatosis with polyangiitis [Not Recovered/Not Resolved]
  - Vasculitis [Unknown]
  - Polyneuropathy [Unknown]
  - Petechiae [Unknown]

NARRATIVE: CASE EVENT DATE: 20201015
